FAERS Safety Report 4661175-2 (Version None)
Quarter: 2005Q2

REPORT INFORMATION
  Report Type: 
  Country: None (occurrence: None)
  Receive Date: 20050513
  Receipt Date: 20050503
  Transmission Date: 20051028
  Serious: Yes (Hospitalization, Other)
  Sender: FDA-Public Use
  Company Number: IT-JNJFOC-20050400869

PATIENT
  Sex: Male
  Weight: 74 kg

DRUGS (10)
  1. REOPRO [Suspect]
     Dosage: 4.5 ML IN 50 ML DILUENT AT 3.1 ML/H
     Route: 042
  2. REOPRO [Suspect]
     Indication: ACUTE MYOCARDIAL INFARCTION
     Route: 042
  3. RETEPLASE [Suspect]
     Indication: ACUTE MYOCARDIAL INFARCTION
     Route: 042
  4. HEPARIN [Concomitant]
     Route: 042
  5. HEPARIN [Concomitant]
     Route: 042
  6. ACETYL SALICYLIC ACID USP BAT [Concomitant]
  7. BETA BLOCKERS [Concomitant]
  8. STATINS [Concomitant]
  9. CLOPIDOGREL BISULFATE [Concomitant]
  10. TICLOPIDINE HCL [Concomitant]

REACTIONS (3)
  - CORONARY ARTERY DISEASE [None]
  - HAEMORRHAGE URINARY TRACT [None]
  - URINARY RETENTION [None]
